FAERS Safety Report 7327913-5 (Version None)
Quarter: 2011Q1

REPORT INFORMATION
  Report Type: 
  Country: None (occurrence: None)
  Receive Date: 20110218
  Receipt Date: 20110204
  Transmission Date: 20110831
  Serious: Yes (Hospitalization)
  Sender: FDA-Public Use
  Company Number: 024777

PATIENT
  Sex: Female

DRUGS (6)
  1. CIMZIA [Suspect]
     Indication: CROHN'S DISEASE
     Dosage: (200 MG 1X/4 WEEKS SUBCUTANEOUS), (400 MG 1X/MONTH, ON 25-OCT-2010 EXTRA  DOSE SUBCUTANEOUS)
     Route: 058
     Dates: start: 20100625, end: 20100723
  2. CIMZIA [Suspect]
     Indication: CROHN'S DISEASE
     Dosage: (200 MG 1X/4 WEEKS SUBCUTANEOUS), (400 MG 1X/MONTH, ON 25-OCT-2010 EXTRA  DOSE SUBCUTANEOUS)
     Route: 058
     Dates: start: 20100813, end: 20101206
  3. XANAX [Concomitant]
  4. CITALOPRAM HYDROBROMIDE [Concomitant]
  5. AMBIEN [Concomitant]
  6. VIVELLE-DOT [Concomitant]

REACTIONS (1)
  - CROHN'S DISEASE [None]
